FAERS Safety Report 9106567 (Version 4)
Quarter: 2013Q2

REPORT INFORMATION
  Report Type: Report from Study
  Country: DE (occurrence: DE)
  Receive Date: 20130221
  Receipt Date: 20130625
  Transmission Date: 20140414
  Serious: Yes (Other)
  Sender: FDA-Public Use
  Company Number: DE-CELGENEUS-062-C5013-13021773

PATIENT
  Age: 75 Year
  Sex: Female
  Weight: 54.5 kg

DRUGS (3)
  1. CC-5013 [Suspect]
     Indication: PLASMA CELL MYELOMA
     Dosage: 10 MILLIGRAM
     Route: 048
     Dates: start: 20070611, end: 20100530
  2. MELPHALAN [Suspect]
     Indication: PLASMA CELL MYELOMA
     Dosage: 10-12MG
     Route: 048
     Dates: start: 20070611, end: 20080124
  3. PREDNISONE [Suspect]
     Indication: PLASMA CELL MYELOMA
     Dosage: 123MG
     Route: 048
     Dates: start: 20070611, end: 20080124

REACTIONS (2)
  - Renal cell carcinoma stage I [Recovered/Resolved]
  - Post procedural infection [Recovered/Resolved]
